FAERS Safety Report 14536643 (Version 1)
Quarter: 2018Q1

REPORT INFORMATION
  Report Type: Spontaneous
  Country: US (occurrence: US)
  Receive Date: 20180215
  Receipt Date: 20180215
  Transmission Date: 20180509
  Serious: Yes (Hospitalization)
  Sender: FDA-Public Use
  Company Number: None

PATIENT
  Age: 86 Year
  Sex: Female
  Weight: 101.2 kg

DRUGS (9)
  1. GLUCOTROL [Concomitant]
     Active Substance: GLIPIZIDE
  2. K-DUR [Concomitant]
     Active Substance: POTASSIUM CHLORIDE
  3. PRAVACHOL [Concomitant]
     Active Substance: PRAVASTATIN SODIUM
  4. TOPROL XL [Concomitant]
     Active Substance: METOPROLOL SUCCINATE
  5. ALLOPURINOL. [Concomitant]
     Active Substance: ALLOPURINOL
  6. ASPIRIN. [Suspect]
     Active Substance: ASPIRIN
     Indication: CORONARY ARTERY DISEASE
     Route: 048
  7. LASIX [Concomitant]
     Active Substance: FUROSEMIDE
  8. PLAVIX [Suspect]
     Active Substance: CLOPIDOGREL BISULFATE
     Indication: ATRIAL FIBRILLATION
     Route: 048
  9. PROTONIX [Concomitant]
     Active Substance: PANTOPRAZOLE SODIUM

REACTIONS (6)
  - Acute kidney injury [None]
  - Therapy cessation [None]
  - Adenocarcinoma of colon [None]
  - Gastrointestinal haemorrhage [None]
  - Gastric polyps [None]
  - Haemorrhagic anaemia [None]

NARRATIVE: CASE EVENT DATE: 20170517
